FAERS Safety Report 24053834 (Version 3)
Quarter: 2024Q4

REPORT INFORMATION
  Report Type: Spontaneous
  Country: US (occurrence: US)
  Receive Date: 20240705
  Receipt Date: 20241126
  Transmission Date: 20250114
  Serious: Yes (Other)
  Sender: BAUSCH AND LOMB
  Company Number: US-BAUSCHBL-2024BNL029203

PATIENT
  Age: 74 Year
  Sex: Female

DRUGS (3)
  1. OPCON-A [Suspect]
     Active Substance: NAPHAZOLINE HYDROCHLORIDE\PHENIRAMINE MALEATE
     Indication: Dry eye
     Dosage: 1 DROP IN EACH EYE
     Route: 047
     Dates: start: 20240624, end: 20240625
  2. OPCON-A [Suspect]
     Active Substance: NAPHAZOLINE HYDROCHLORIDE\PHENIRAMINE MALEATE
     Indication: Eye pruritus
  3. TORSEMIDE [Concomitant]
     Active Substance: TORSEMIDE
     Indication: Product used for unknown indication
     Route: 048

REACTIONS (5)
  - Urinary retention [Unknown]
  - Vision blurred [Unknown]
  - Malaise [Unknown]
  - Recalled product [Unknown]
  - Product complaint [Unknown]

NARRATIVE: CASE EVENT DATE: 20240601
